FAERS Safety Report 5912301-6 (Version None)
Quarter: 2008Q4

REPORT INFORMATION
  Report Type: 
  Country: None (occurrence: None)
  Receive Date: 20081008
  Receipt Date: 20080924
  Transmission Date: 20090506
  Serious: Yes (Death)
  Sender: FDA-Public Use
  Company Number: US-ROCHE-588008

PATIENT
  Sex: Female
  Weight: 56.2 kg

DRUGS (2)
  1. CAPECITABINE [Suspect]
     Dosage: FREQUENCY REPORTED AS: ^D1 - D14^
     Route: 048
     Dates: start: 20080311, end: 20080826
  2. GEMCITABINE [Suspect]
     Dosage: FREQUENCY REPORTED AS: ^D1, D8^, ROUTE REPORTED: INTRAVENOUS (NOT OTHERWISE SPECIFIED).
     Route: 042
     Dates: start: 20080311, end: 20080821

REACTIONS (1)
  - DISEASE PROGRESSION [None]
